FAERS Safety Report 5536910-1 (Version None)
Quarter: 2007Q4

REPORT INFORMATION
  Report Type: 
  Country: None (occurrence: None)
  Receive Date: 20071207
  Receipt Date: 20071129
  Transmission Date: 20080405
  Serious: Yes (Other)
  Sender: FDA-Public Use
  Company Number: PHBS2007JP19103

PATIENT

DRUGS (3)
  1. ZOMETA [Suspect]
     Indication: MULTIPLE MYELOMA
     Dosage: UNK, UNK
     Route: 042
  2. MELPHALAN [Concomitant]
     Indication: MULTIPLE MYELOMA
  3. PREDNISOLONE [Concomitant]

REACTIONS (1)
  - BONE INFARCTION [None]
